FAERS Safety Report 8872078 (Version 1)
Quarter: 2012Q4

REPORT INFORMATION
  Report Type: 
  Country: US (occurrence: US)
  Receive Date: 20121023
  Receipt Date: 20121023
  Transmission Date: 20130627
  Serious: No
  Sender: FDA-Public Use
  Company Number: US-ASTELLAS-2012US005145

PATIENT

DRUGS (4)
  1. PROGRAF [Suspect]
     Indication: RENAL TRANSPLANT
     Dosage: 3 mg in the morning and 2 mg in the evening
     Route: 048
     Dates: start: 20080113
  2. CELLCEPT                           /01275104/ [Concomitant]
     Indication: RENAL TRANSPLANT
     Dosage: 500 mg, bid
     Route: 048
     Dates: start: 20080113
  3. PREDNISONE [Concomitant]
     Indication: RENAL TRANSPLANT
     Dosage: 5 mg, UID/QD
     Route: 048
     Dates: start: 20080113
  4. PEPCID AC [Concomitant]
     Indication: GASTRIC DISORDER
     Dosage: 20 mg, UID/QD
     Route: 048
     Dates: start: 20080113

REACTIONS (2)
  - Nasopharyngitis [Not Recovered/Not Resolved]
  - Cough [Not Recovered/Not Resolved]
